FAERS Safety Report 11150793 (Version 3)
Quarter: 2015Q3

REPORT INFORMATION
  Report Type: Report from Study
  Country: BR (occurrence: BR)
  Receive Date: 20150601
  Receipt Date: 20150715
  Transmission Date: 20151125
  Serious: Yes (Death, Hospitalization, Other)
  Sender: FDA-Public Use
  Company Number: BR-ABBVIE-15K-020-1398056-00

PATIENT
  Age: 71 Year
  Sex: Female
  Weight: 40 kg

DRUGS (2)
  1. PREDNISONE. [Concomitant]
     Active Substance: PREDNISONE
     Indication: PRODUCT USED FOR UNKNOWN INDICATION
     Route: 048
  2. HUMIRA [Suspect]
     Active Substance: ADALIMUMAB
     Indication: CROHN^S DISEASE
     Dosage: WEEK 0
     Route: 058
     Dates: start: 20150520, end: 20150520

REACTIONS (6)
  - Intestinal fistula [Unknown]
  - Abdominal distension [Recovering/Resolving]
  - Peritonitis [Unknown]
  - Fistula discharge [Unknown]
  - Death [Fatal]
  - Abdominal abscess [Recovering/Resolving]

NARRATIVE: CASE EVENT DATE: 201505
